FAERS Safety Report 10069690 (Version 1)
Quarter: 2014Q2

REPORT INFORMATION
  Report Type: Spontaneous
  Country: US (occurrence: None)
  Receive Date: 20140409
  Receipt Date: 20140409
  Transmission Date: 20141212
  Serious: Yes (Other)
  Sender: FDA-Public Use
  Company Number: None

PATIENT
  Age: 28 Year
  Sex: Male
  Weight: 61.24 kg

DRUGS (1)
  1. LEVAQUIN [Suspect]
     Indication: COUGH
     Dosage: 3 DOSES, 1 PILL, ONCE DAILY, TAKEN BY MOUTH
     Route: 048

REACTIONS (1)
  - Erectile dysfunction [None]
